FAERS Safety Report 9169939 (Version 1)
Quarter: 2013Q1

REPORT INFORMATION
  Report Type: Spontaneous
  Country: US (occurrence: US)
  Receive Date: 20130319
  Receipt Date: 20130319
  Transmission Date: 20140127
  Serious: No
  Sender: FDA-Public Use
  Company Number: US-BIOGENIDEC-2013BI023235

PATIENT
  Sex: Female

DRUGS (5)
  1. AVONEX [Suspect]
     Indication: MULTIPLE SCLEROSIS
     Route: 030
     Dates: start: 20000215, end: 20041011
  2. AVONEX [Suspect]
     Indication: MULTIPLE SCLEROSIS
     Route: 030
     Dates: start: 20041115, end: 20050216
  3. AVONEX [Suspect]
     Indication: MULTIPLE SCLEROSIS
     Route: 030
     Dates: start: 20090801
  4. AVONEX [Suspect]
     Indication: MULTIPLE SCLEROSIS
     Route: 030
     Dates: start: 20091030
  5. STEROIDS (NOS) [Concomitant]
     Indication: MULTIPLE SCLEROSIS
     Dates: start: 2012

REACTIONS (6)
  - Blood glucose increased [Not Recovered/Not Resolved]
  - Weight increased [Unknown]
  - Tooth infection [Not Recovered/Not Resolved]
  - Urinary tract infection [Unknown]
  - Periodontal disease [Unknown]
  - Tooth disorder [Unknown]
